FAERS Safety Report 20809866 (Version 6)
Quarter: 2022Q4

REPORT INFORMATION
  Report Type: Report from Study
  Country: US (occurrence: US)
  Receive Date: 20220510
  Receipt Date: 20221221
  Transmission Date: 20230113
  Serious: No
  Sender: FDA-Public Use
  Company Number: US-NOVARTISTESTPH-NVSC2022US103715

PATIENT
  Age: 53 Year
  Sex: Female

DRUGS (1)
  1. COSENTYX [Suspect]
     Active Substance: SECUKINUMAB
     Indication: Ankylosing spondylitis
     Dosage: 150 MG, QMO
     Route: 058
     Dates: start: 20220212

REACTIONS (5)
  - Injection site bruising [Recovered/Resolved]
  - Dry skin [Unknown]
  - Skin fragility [Unknown]
  - Dyskinesia [Unknown]
  - Rash macular [Unknown]

NARRATIVE: CASE EVENT DATE: 20220420
